FAERS Safety Report 18196233 (Version 1)
Quarter: 2020Q3

REPORT INFORMATION
  Report Type: Spontaneous
  Country: US (occurrence: US)
  Receive Date: 20200826
  Receipt Date: 20200826
  Transmission Date: 20201103
  Serious: No
  Sender: FDA-Public Use
  Company Number: US-DRREDDYS-USA/USA/20/0126113

PATIENT
  Age: 61 Year
  Sex: Female
  Weight: 89.1 kg

DRUGS (2)
  1. AZELASTINE NASAL SPRAY [Concomitant]
     Active Substance: AZELASTINE
     Indication: PRODUCT USED FOR UNKNOWN INDICATION
     Route: 045
  2. OMEPRAZOLE DELAYED RELEASE CAPSULES 20 MG [Suspect]
     Active Substance: OMEPRAZOLE
     Indication: DYSPHONIA
     Route: 048
     Dates: start: 20200816, end: 20200818

REACTIONS (2)
  - Product used for unknown indication [Unknown]
  - Dyspnoea [Unknown]
